FAERS Safety Report 19630973 (Version 4)
Quarter: 2021Q3

REPORT INFORMATION
  Report Type: Spontaneous
  Country: FR (occurrence: FR)
  Receive Date: 20210729
  Receipt Date: 20210927
  Transmission Date: 20211014
  Serious: Yes (Death)
  Sender: FDA-Public Use
  Company Number: FR-009507513-2107FRA007395

PATIENT
  Age: 68 Year
  Sex: Male

DRUGS (13)
  1. UROMITEXAN [Concomitant]
     Active Substance: MESNA
     Indication: DRUG TOXICITY PROPHYLAXIS
     Dosage: 275 MILLIGRAM, CYCLICAL
     Route: 042
     Dates: start: 20210628, end: 20210630
  2. CILASTATIN SODIUM;IMIPENEM [Suspect]
     Active Substance: CILASTATIN SODIUM\IMIPENEM
     Indication: INFECTION PROPHYLAXIS
     Dosage: 3 DOSAGE FORM, QD; 500 MG/500 MG
     Route: 042
     Dates: start: 20210609, end: 20210703
  3. GABAPENTINE [Concomitant]
     Active Substance: GABAPENTIN
     Indication: PAIN
     Dosage: 300 MILLIGRAM, QD (100 MG X3/DAY)
     Route: 048
     Dates: start: 20210612, end: 20210701
  4. CANCIDAS [Suspect]
     Active Substance: CASPOFUNGIN ACETATE
     Indication: ASPERGILLUS INFECTION
     Dosage: 70 MILLIGRAM, QD, POWDER FOR SOLUTION TO DILUTE FOR INFUSION (ALSO REPORTED AS POWDER FOR SOLUTION F
     Route: 042
     Dates: start: 20210611, end: 20210703
  5. URSODEOXYCHOLIC ACID [Concomitant]
     Active Substance: URSODIOL
     Indication: CHOLANGITIS
     Dosage: 250 MILLIGRAM, QD
     Route: 048
     Dates: start: 20210612, end: 20210701
  6. ETOPOSIDE MYLAN [Suspect]
     Active Substance: ETOPOSIDE
     Indication: BONE MARROW CONDITIONING REGIMEN
     Dosage: 183 MILLIGRAM, QD
     Route: 042
     Dates: start: 20210628, end: 20210630
  7. ZYVOXID [Suspect]
     Active Substance: LINEZOLID
     Indication: INFECTION PROPHYLAXIS
     Dosage: 1200 MILLIGRAM, QD (600 MGX2/DAY) FORMULATION ALSO REPORTED AS COATED TABLET
     Route: 065
     Dates: start: 20210609, end: 20210629
  8. ENDOXAN [CYCLOPHOSPHAMIDE] [Suspect]
     Active Substance: CYCLOPHOSPHAMIDE
     Indication: BONE MARROW CONDITIONING REGIMEN
     Dosage: 460 MILLIGRAM, QD
     Route: 042
     Dates: start: 20210628, end: 20210630
  9. CLOFARABINE MYLAN [Suspect]
     Active Substance: CLOFARABINE
     Indication: BONE MARROW CONDITIONING REGIMEN
     Dosage: UNK,40MG/M2
     Route: 042
     Dates: start: 20210628, end: 20210630
  10. SANDIMMUN [Suspect]
     Active Substance: CYCLOSPORINE
     Indication: PROPHYLAXIS AGAINST TRANSPLANT REJECTION
     Dosage: 200 MILLIGRAM, QD
     Route: 042
     Dates: start: 20210522, end: 20210702
  11. CELLCEPT [Suspect]
     Active Substance: MYCOPHENOLATE MOFETIL\MYCOPHENOLATE MOFETIL HYDROCHLORIDE
     Indication: PROPHYLAXIS AGAINST TRANSPLANT REJECTION
     Dosage: 2 GRAM, QD
     Route: 048
     Dates: start: 20210522, end: 20210702
  12. TRAMADOL HYDROCHLORIDE. [Concomitant]
     Active Substance: TRAMADOL HYDROCHLORIDE
     Indication: PAIN
     Dosage: 1 DOSAGE FORM, QD
     Route: 048
     Dates: start: 20210612, end: 20210701
  13. ZOPHREN [ONDANSETRON] [Concomitant]
     Active Substance: ONDANSETRON
     Indication: PROPHYLAXIS OF NAUSEA AND VOMITING
     Dosage: 8 MILLIGRAM, QD
     Route: 048
     Dates: start: 20210628, end: 20210630

REACTIONS (1)
  - Acute kidney injury [Fatal]

NARRATIVE: CASE EVENT DATE: 20210702
